FAERS Safety Report 23103909 (Version 1)
Quarter: 2023Q4

REPORT INFORMATION
  Report Type: Spontaneous
  Country: US (occurrence: US)
  Receive Date: 20231025
  Receipt Date: 20231025
  Transmission Date: 20240109
  Serious: No
  Sender: FDA-Public Use
  Company Number: US-KARYOPHARM-2023KPT001763

PATIENT

DRUGS (8)
  1. XPOVIO [Suspect]
     Active Substance: SELINEXOR
     Indication: Plasma cell myeloma
     Dosage: 20 MG, WEEKLY
     Route: 048
     Dates: start: 20230807
  2. ACYCLOVIR [Concomitant]
     Active Substance: ACYCLOVIR
  3. AMLODIPINE [Concomitant]
     Active Substance: AMLODIPINE BESYLATE
  4. CRESTOR [Concomitant]
     Active Substance: ROSUVASTATIN CALCIUM
  5. ESCITALOPRAM [Concomitant]
     Active Substance: ESCITALOPRAM OXALATE
  6. LEVETIRACETAM [Concomitant]
     Active Substance: LEVETIRACETAM
  7. LEVOTHYROXINE [Concomitant]
     Active Substance: LEVOTHYROXINE
  8. ZETIA [Concomitant]
     Active Substance: EZETIMIBE

REACTIONS (3)
  - Balance disorder [Unknown]
  - Paraesthesia [Recovering/Resolving]
  - Dizziness [Unknown]

NARRATIVE: CASE EVENT DATE: 20230801
